FAERS Safety Report 19502119 (Version 2)
Quarter: 2021Q3

REPORT INFORMATION
  Report Type: Spontaneous
  Country: US (occurrence: US)
  Receive Date: 20210707
  Receipt Date: 20210726
  Transmission Date: 20211014
  Serious: Yes (Hospitalization, Other)
  Sender: FDA-Public Use
  Company Number: US-ACCORD-230420

PATIENT
  Age: 31 Year
  Sex: Male

DRUGS (2)
  1. CLOZAPINE. [Suspect]
     Active Substance: CLOZAPINE
     Indication: SCHIZOPHRENIA
     Dosage: 50?200MG PO DAILY (FOR ABOUT 8 MONTHS)
     Route: 048
     Dates: start: 201804, end: 201811
  2. CLOZAPINE. [Suspect]
     Active Substance: CLOZAPINE
     Indication: SCHIZOPHRENIA
     Dosage: 50?200MG PO DAILY (FOR ABOUT 8 MONTHS)
     Route: 048
     Dates: end: 201811

REACTIONS (1)
  - Acute lymphocytic leukaemia [Recovered/Resolved]

NARRATIVE: CASE EVENT DATE: 201811
